FAERS Safety Report 5764283-8 (Version None)
Quarter: 2008Q2

REPORT INFORMATION
  Report Type: 
  Country: None (occurrence: None)
  Receive Date: 20080604
  Receipt Date: 20080501
  Transmission Date: 20081010
  Serious: Yes (Other)
  Sender: FDA-Public Use
  Company Number: 2008US001271

PATIENT
  Age: 74 Year
  Sex: Female

DRUGS (6)
  1. VESICARE [Suspect]
     Indication: HYPERTONIC BLADDER
     Dosage: 5 MG, ORAL
     Route: 048
     Dates: start: 20080415, end: 20080424
  2. ANTIHYPERTENSIVES [Concomitant]
  3. NEXIUM [Concomitant]
  4. TRAMADOL HCL [Concomitant]
  5. TYLENOL EXTRA STRENGTH [Concomitant]
  6. DICLOFENAC (DICLOFENAC POTASSIUM) [Concomitant]

REACTIONS (3)
  - GAIT DISTURBANCE [None]
  - IMPAIRED WORK ABILITY [None]
  - PAIN IN EXTREMITY [None]
